FAERS Safety Report 19438449 (Version 1)
Quarter: 2021Q2

REPORT INFORMATION
  Report Type: Report from Study
  Country: AR (occurrence: AR)
  Receive Date: 20210619
  Receipt Date: 20210619
  Transmission Date: 20210717
  Serious: Yes (Other)
  Sender: FDA-Public Use
  Company Number: NVSC2021AR135411

PATIENT
  Age: 14 Year
  Sex: Female

DRUGS (1)
  1. OMNITROPE [Suspect]
     Active Substance: SOMATROPIN
     Indication: PRADER-WILLI SYNDROME
     Dosage: 2.7 MG, QD
     Route: 058
     Dates: start: 20190530, end: 202011

REACTIONS (2)
  - Hyperglycaemia [Unknown]
  - Scoliosis [Recovered/Resolved]

NARRATIVE: CASE EVENT DATE: 20201115
